FAERS Safety Report 15601490 (Version 2)
Quarter: 2018Q4

REPORT INFORMATION
  Report Type: Report from Study
  Country: US (occurrence: US)
  Receive Date: 20181109
  Receipt Date: 20181224
  Transmission Date: 20190205
  Serious: Yes (Death, Hospitalization, Other)
  Sender: FDA-Public Use
  Company Number: US-GILEAD-2018-0363227

PATIENT
  Age: 77 Year
  Sex: Male

DRUGS (1)
  1. AMBRISENTAN [Suspect]
     Active Substance: AMBRISENTAN
     Indication: PULMONARY ARTERIAL HYPERTENSION
     Dosage: 10 MG, QD
     Route: 048
     Dates: start: 20170424, end: 20181218

REACTIONS (12)
  - Head injury [Unknown]
  - Pulmonary arterial pressure increased [Unknown]
  - Weight increased [Unknown]
  - Wheelchair user [Recovered/Resolved]
  - Cardiac failure acute [Unknown]
  - Ankle fracture [Unknown]
  - Fall [Unknown]
  - Death [Fatal]
  - Fluid overload [Unknown]
  - Oxygen saturation decreased [Unknown]
  - Hypoxia [Unknown]
  - Brain natriuretic peptide increased [Unknown]

NARRATIVE: CASE EVENT DATE: 201808
